FAERS Safety Report 8797710 (Version 2)
Quarter: 2015Q1

REPORT INFORMATION
  Report Type: Report from Study
  Country: US (occurrence: US)
  Receive Date: 20120919
  Receipt Date: 20150326
  Transmission Date: 20150721
  Serious: Yes (Death)
  Sender: FDA-Public Use
  Company Number: US-ROCHE-1126368

PATIENT
  Sex: Female

DRUGS (3)
  1. AVASTIN [Suspect]
     Active Substance: BEVACIZUMAB
     Indication: METASTASES TO GASTROINTESTINAL TRACT
     Route: 065
     Dates: start: 20110812
  2. AVASTIN [Suspect]
     Active Substance: BEVACIZUMAB
     Indication: MALIGNANT SPLENIC NEOPLASM
  3. AVASTIN [Suspect]
     Active Substance: BEVACIZUMAB
     Indication: BILE DUCT CANCER
     Route: 065
     Dates: start: 20110729

REACTIONS (2)
  - Death [Fatal]
  - Metastases to liver [Unknown]
